FAERS Safety Report 7182774-2 (Version None)
Quarter: 2010Q4

REPORT INFORMATION
  Report Type: 
  Country: None (occurrence: None)
  Receive Date: 20101221
  Receipt Date: 20100628
  Transmission Date: 20110411
  Serious: No
  Sender: FDA-Public Use
  Company Number: US-AMGEN-TCS412926

PATIENT

DRUGS (3)
  1. ENBREL [Suspect]
     Indication: PSORIATIC ARTHROPATHY
     Dosage: 50 MG, 2 TIMES/WK
     Route: 058
     Dates: start: 20060508
  2. ENBREL [Suspect]
     Indication: PSORIASIS
  3. UNKNOWN DRUG[INGREDIENT UNKNOWN] [Concomitant]
     Dosage: UNK UNK, UNK
     Dates: start: 20080101, end: 20080101

REACTIONS (4)
  - ASTHMA [None]
  - BRONCHITIS [None]
  - PSORIASIS [None]
  - UPPER RESPIRATORY TRACT INFECTION [None]
